FAERS Safety Report 26047407 (Version 1)
Quarter: 2025Q4

REPORT INFORMATION
  Report Type: Spontaneous
  Country: US (occurrence: US)
  Receive Date: 20251114
  Receipt Date: 20251114
  Transmission Date: 20260117
  Serious: No
  Sender: MERCK SHARP & DOHME LLC
  Company Number: US-009507513-2343150

PATIENT
  Age: 11 Year
  Sex: Female

DRUGS (2)
  1. PEMBROLIZUMAB [Suspect]
     Active Substance: PEMBROLIZUMAB
     Indication: Ewing^s sarcoma
  2. TEMODAR [Suspect]
     Active Substance: TEMOZOLOMIDE
     Indication: Ewing^s sarcoma

REACTIONS (2)
  - Product use in unapproved indication [Unknown]
  - Product use issue [Unknown]
